FAERS Safety Report 5026196-9 (Version None)
Quarter: 2006Q2

REPORT INFORMATION
  Report Type: 
  Country: None (occurrence: None)
  Receive Date: 20060608
  Receipt Date: 20010906
  Transmission Date: 20061013
  Serious: No
  Sender: FDA-Public Use
  Company Number: 2001-09-0305

PATIENT
  Age: 53 Year
  Sex: Male

DRUGS (2)
  1. ETHYOL [Suspect]
     Indication: ADVERSE DRUG REACTION
     Dosage: INTRAVENOUS
     Route: 042
  2. RADIATION THERAPY [Suspect]
     Indication: NEOPLASM MALIGNANT
     Dosage: OTHER

REACTIONS (3)
  - DERMATITIS [None]
  - DISEASE PROGRESSION [None]
  - PRURITUS [None]
